FAERS Safety Report 8008070-9 (Version None)
Quarter: 2011Q4

REPORT INFORMATION
  Report Type: 
  Country: None (occurrence: None)
  Receive Date: 20111227
  Receipt Date: 20111220
  Transmission Date: 20120403
  Serious: Yes (Death)
  Sender: FDA-Public Use
  Company Number: US-ASTRAZENECA-2011SE66659

PATIENT
  Sex: Female

DRUGS (12)
  1. OMEPRAZOLE [Concomitant]
  2. CYMBALTA [Concomitant]
  3. MOOD STABILIZER [Concomitant]
  4. ANTIDEPRESSANT [Concomitant]
  5. FOLIC ACID [Concomitant]
  6. SEROQUEL XR [Suspect]
     Route: 048
  7. CALCIUM ACETATE [Concomitant]
  8. SIMAVASTATIN [Concomitant]
  9. MELOXICAM [Concomitant]
  10. LOVAZA [Concomitant]
  11. VITAMIN B-12 [Concomitant]
  12. LYRICA [Concomitant]

REACTIONS (6)
  - SUDDEN CARDIAC DEATH [None]
  - SOMNOLENCE [None]
  - HYPERTENSION [None]
  - BIPOLAR DISORDER [None]
  - SLEEP APNOEA SYNDROME [None]
  - OBESITY [None]
